FAERS Safety Report 5835975-7 (Version None)
Quarter: 2008Q3

REPORT INFORMATION
  Report Type: 
  Country: None (occurrence: None)
  Receive Date: 20080805
  Receipt Date: 20080724
  Transmission Date: 20090109
  Serious: Yes (Life-Threatening, Hospitalization, Other)
  Sender: FDA-Public Use
  Company Number: 2005-01260

PATIENT
  Age: 57 Year
  Sex: Male

DRUGS (19)
  1. VELCADE [Suspect]
     Indication: MULTIPLE MYELOMA
     Dosage: 2.3 MG, IV BOLUS
     Route: 040
     Dates: start: 20050531, end: 20050603
  2. DOXORUBICIN HCL [Suspect]
     Indication: MULTIPLE MYELOMA
     Dosage: 9 MG/M2, IV BOLUS
     Route: 040
     Dates: start: 20050531, end: 20050603
  3. DEXAMETHASONE TAB [Suspect]
     Indication: MULTIPLE MYELOMA
     Dosage: 40 MG, ORAL
     Route: 048
     Dates: start: 20050531, end: 20050603
  4. DIFLUCAN [Concomitant]
  5. COTRIM [Concomitant]
  6. FENTANYL-100 [Concomitant]
  7. MORPHINE SULFATE [Concomitant]
  8. ACETAMINOPHEN [Concomitant]
  9. OXYCODONE HCL [Concomitant]
  10. CIPROFLOXACIN [Concomitant]
  11. FLUCONAZOLE [Concomitant]
  12. MORPHINE [Concomitant]
  13. NEXIUM [Concomitant]
  14. COMBIVENT [Concomitant]
  15. SODIUM CHLORIDE 0.9% [Concomitant]
  16. CO-TRIMOXAZOL ^FATOL^ (SULFAMETHOXAZOLE, TRIMETHOPRIM) [Concomitant]
  17. DALTEPARIN SODIUM [Concomitant]
  18. HEPARIN [Concomitant]
  19. CELEBREX [Concomitant]

REACTIONS (11)
  - CONFUSIONAL STATE [None]
  - DELIRIUM [None]
  - DYSPNOEA [None]
  - ELECTROLYTE IMBALANCE [None]
  - HYPONATRAEMIA [None]
  - HYPOPHAGIA [None]
  - PNEUMOTHORAX [None]
  - PULMONARY EMBOLISM [None]
  - RESPIRATORY FAILURE [None]
  - RIB FRACTURE [None]
  - STERNAL FRACTURE [None]
